FAERS Safety Report 9570839 (Version 2)
Quarter: 2013Q4

REPORT INFORMATION
  Report Type: Spontaneous
  Country: US (occurrence: US)
  Receive Date: 20131001
  Receipt Date: 20131009
  Transmission Date: 20140711
  Serious: Yes (Hospitalization, Other)
  Sender: FDA-Public Use
  Company Number: US-AMGEN-USASP2013068237

PATIENT
  Age: 67 Year
  Sex: Female

DRUGS (1)
  1. ENBREL [Suspect]
     Indication: RHEUMATOID ARTHRITIS
     Dosage: UNK MG, 2 TIMES/WK
     Route: 065
     Dates: start: 19991001, end: 200807

REACTIONS (2)
  - Pulmonary embolism [Not Recovered/Not Resolved]
  - Lymphoma [Not Recovered/Not Resolved]
